FAERS Safety Report 17769199 (Version 1)
Quarter: 2020Q2

REPORT INFORMATION
  Report Type: Other
  Country: CN (occurrence: CN)
  Receive Date: 20200512
  Receipt Date: 20200512
  Transmission Date: 20200714
  Serious: Yes (Life-Threatening, Hospitalization, Other)
  Sender: FDA-Public Use
  Company Number: CN-ASTELLAS-2020US016331

PATIENT
  Age: 71 Year
  Sex: Male

DRUGS (2)
  1. CELLCEPT [Suspect]
     Active Substance: MYCOPHENOLATE MOFETIL\MYCOPHENOLATE MOFETIL HYDROCHLORIDE
     Indication: PROPHYLAXIS AGAINST TRANSPLANT REJECTION
     Dosage: 0.5 G, TWICE DAILY (0.5 IN THE MORNING AND 0.5 IN THE EVENING)
     Route: 048
     Dates: start: 20070416, end: 20200506
  2. PROGRAF [Suspect]
     Active Substance: TACROLIMUS
     Indication: PROPHYLAXIS AGAINST TRANSPLANT REJECTION
     Dosage: 1 MG IN MORNING AND 0.5 MG IN EVENING, QOD 1 MG IN MORNING AND 1 MG IN EVENING, QOD ALTERNATELY
     Route: 048
     Dates: start: 20070416, end: 20200506

REACTIONS (5)
  - Gastric cancer [Not Recovered/Not Resolved]
  - Chronic gastritis [Unknown]
  - Gastric polyps [Unknown]
  - Gastric ulcer haemorrhage [Not Recovered/Not Resolved]
  - Gastric ulcer [Unknown]

NARRATIVE: CASE EVENT DATE: 20200126
